FAERS Safety Report 4576554-1 (Version None)
Quarter: 2005Q1

REPORT INFORMATION
  Report Type: 
  Country: None (occurrence: None)
  Receive Date: 20050119
  Receipt Date: 20040517
  Transmission Date: 20050727
  Serious: Yes (Other)
  Sender: FDA-Public Use
  Company Number: A03200401590

PATIENT
  Age: 35 Year
  Sex: Male

DRUGS (2)
  1. PLAVIX [Suspect]
     Indication: STENT PLACEMENT
     Dosage: 300 MG LOADING DOSE 4-6 HOURS PRIOR TO PCI FOLLOWED BY 300 MG THE NEXT DAY - ORAL
     Route: 048
  2. ASPIRIN [Suspect]
     Indication: ACUTE CORONARY SYNDROME

REACTIONS (3)
  - DRUG INEFFECTIVE [None]
  - PLATELET AGGREGATION ABNORMAL [None]
  - STENT OCCLUSION [None]
